FAERS Safety Report 4804489-5 (Version None)
Quarter: 2005Q4

REPORT INFORMATION
  Report Type: 
  Country: None (occurrence: None)
  Receive Date: 20051017
  Receipt Date: 20051004
  Transmission Date: 20060501
  Serious: Yes (Other)
  Sender: FDA-Public Use
  Company Number: 2005140087

PATIENT
  Age: 35 Year
  Sex: Female

DRUGS (3)
  1. NEURONTIN [Suspect]
     Indication: NEURALGIA
     Dosage: 900 MG (300 MG, 3 IN 1 D)
     Dates: start: 20050118, end: 20050201
  2. PAROXETINE HYDROCHLORIDE [Concomitant]
  3. ASPEGIC 1000 [Concomitant]

REACTIONS (6)
  - CEREBRAL DISORDER [None]
  - CEREBROVASCULAR ACCIDENT [None]
  - EPILEPSY [None]
  - SCAR [None]
  - SOMNOLENCE [None]
  - TREATMENT NONCOMPLIANCE [None]
